FAERS Safety Report 7263905-2 (Version None)
Quarter: 2011Q1

REPORT INFORMATION
  Report Type: 
  Country: None (occurrence: None)
  Receive Date: 20110130
  Receipt Date: 20101208
  Transmission Date: 20110831
  Serious: No
  Sender: FDA-Public Use
  Company Number: US-ABBOTT-10P-163-0690334-00

PATIENT
  Age: 77 Year
  Sex: Female

DRUGS (20)
  1. HYOMAX-SL [Concomitant]
     Indication: DIARRHOEA
     Dosage: 1-2 DAILY
     Route: 060
  2. XANAX [Concomitant]
     Indication: PRODUCT USED FOR UNKNOWN INDICATION
     Dosage: EVERY 8 HOURS AS NEEDED
  3. HUMIRA [Suspect]
     Indication: CROHN'S DISEASE
     Dates: start: 20100801
  4. AZELASTINE HCL [Concomitant]
     Indication: SEASONAL ALLERGY
     Dosage: 1 GTT IN EACH EYE AS NEEDED
  5. CLONAZEPAM [Concomitant]
     Indication: RESTLESS LEGS SYNDROME
     Dosage: AT BEDTIME
  6. FE [Concomitant]
     Indication: ANAEMIA
  7. VIT C [Concomitant]
     Indication: PRODUCT USED FOR UNKNOWN INDICATION
  8. NEXIUM [Concomitant]
     Indication: REFLUX GASTRITIS
  9. VIT D [Concomitant]
     Indication: PRODUCT USED FOR UNKNOWN INDICATION
  10. BALSALZIDE [Concomitant]
     Indication: CROHN'S DISEASE
     Dosage: 3 TABLETS THREE TIMES A DAY
  11. ZOLOFT [Concomitant]
     Indication: DEPRESSION
  12. ASTELIN [Concomitant]
     Indication: SEASONAL ALLERGY
     Dosage: EACH NOSTRIL DAILY
  13. ATENOLOL AND CHLORTHALIDONE [Concomitant]
     Indication: HYPERTENSION
     Dosage: 50/100MG DAILY
  14. SINGULAIR [Concomitant]
     Indication: SEASONAL ALLERGY
  15. K+ CL MICRO [Concomitant]
     Indication: CROHN'S DISEASE
     Dosage: 29MDQ/20MEQ DAILY
  16. CALCIUM CITRATE [Concomitant]
     Indication: PRODUCT USED FOR UNKNOWN INDICATION
     Dosage: 2 TABLETS TWICE A DAY
  17. LORRISET [Concomitant]
     Indication: PRODUCT USED FOR UNKNOWN INDICATION
     Dosage: 10/650MG TWO TABLETS EVERY 8 HOURS PRN
  18. ASA [Concomitant]
     Indication: COAGULOPATHY
     Dosage: AT BEDTIME
  19. LOC-NYDNN [Concomitant]
     Indication: PRODUCT USED FOR UNKNOWN INDICATION
     Dosage: APPLY TO AFFECTED AREA TWO TIMES DAILY
  20. MULTI-VITAMIN [Concomitant]
     Indication: PRODUCT USED FOR UNKNOWN INDICATION

REACTIONS (1)
  - INAPPROPRIATE SCHEDULE OF DRUG ADMINISTRATION [None]
